FAERS Safety Report 24324378 (Version 2)
Quarter: 2024Q4

REPORT INFORMATION
  Report Type: Spontaneous
  Country: KR (occurrence: KR)
  Receive Date: 20240916
  Receipt Date: 20241001
  Transmission Date: 20250115
  Serious: Yes (Death, Other)
  Sender: SANOFI AVENTIS
  Company Number: KR-SA-2024SA266714

PATIENT
  Age: 27 Year
  Sex: Male
  Weight: 80 kg

DRUGS (13)
  1. PREGABALIN [Interacting]
     Active Substance: PREGABALIN
     Dosage: UNK
     Route: 048
  2. VALPROIC ACID [Interacting]
     Active Substance: VALPROIC ACID
     Dosage: UNK
     Route: 048
  3. ALPRAZOLAM [Interacting]
     Active Substance: ALPRAZOLAM
     Dosage: UNK
     Route: 048
  4. BROMAZEPAM [Interacting]
     Active Substance: BROMAZEPAM
     Dosage: UNK
     Route: 048
  5. DIAZEPAM [Interacting]
     Active Substance: DIAZEPAM
     Dosage: UNK
     Route: 048
  6. ZOLPIDEM TARTRATE [Interacting]
     Active Substance: ZOLPIDEM TARTRATE
     Dosage: UNK
     Route: 048
  7. FLUOXETINE [Interacting]
     Active Substance: FLUOXETINE HYDROCHLORIDE
     Dosage: UNK
     Route: 048
  8. PIROXICAM [Interacting]
     Active Substance: PIROXICAM
     Dosage: UNK
     Route: 048
  9. ESCITALOPRAM OXALATE [Interacting]
     Active Substance: ESCITALOPRAM OXALATE
     Dosage: UNK
     Route: 048
  10. TRAZODONE HYDROCHLORIDE [Interacting]
     Active Substance: TRAZODONE HYDROCHLORIDE
     Dosage: UNK
     Route: 048
  11. CLONIDINE [Interacting]
     Active Substance: CLONIDINE
     Dosage: UNK
     Route: 048
  12. LORAZEPAM [Interacting]
     Active Substance: LORAZEPAM
     Dosage: UNK
     Route: 048
  13. FLUNITRAZEPAM [Interacting]
     Active Substance: FLUNITRAZEPAM
     Dosage: UNK
     Route: 048

REACTIONS (7)
  - Toxicity to various agents [Fatal]
  - Drug interaction [Fatal]
  - Pulmonary congestion [Unknown]
  - Pulmonary oedema [Unknown]
  - Conjunctival hyperaemia [Unknown]
  - Hepatic steatosis [Unknown]
  - Contusion [Unknown]
